FAERS Safety Report 5343831-6 (Version None)
Quarter: 2007Q2

REPORT INFORMATION
  Report Type: 
  Country: None (occurrence: None)
  Receive Date: 20070604
  Receipt Date: 20070522
  Transmission Date: 20071010
  Serious: Yes (Hospitalization)
  Sender: FDA-Public Use
  Company Number: NL-AMGEN-US195901

PATIENT
  Sex: Female

DRUGS (2)
  1. ENBREL [Suspect]
     Indication: RHEUMATOID ARTHRITIS
     Dates: start: 19991201, end: 20030601
  2. ENBREL [Suspect]
     Dates: start: 20050501, end: 20050527

REACTIONS (6)
  - ABNORMAL FAECES [None]
  - DRUG EXPOSURE VIA BREAST MILK [None]
  - FEEDING DISORDER OF INFANCY OR EARLY CHILDHOOD [None]
  - GROWTH RETARDATION [None]
  - SMALL FOR DATES BABY [None]
  - WEIGHT DECREASED [None]
